FAERS Safety Report 8872293 (Version 1)
Quarter: 2012Q4

REPORT INFORMATION
  Report Type: 
  Country: US (occurrence: US)
  Receive Date: 20121026
  Receipt Date: 20121026
  Transmission Date: 20130627
  Serious: No
  Sender: FDA-Public Use
  Company Number: US-AMGEN-USASP2012051392

PATIENT
  Age: 46 Year
  Sex: Female
  Weight: 68.03 kg

DRUGS (7)
  1. ENBREL [Suspect]
     Indication: PRODUCT USED FOR UNKNOWN INDICATION
     Dosage: 50 mg, qwk
     Route: 058
  2. METHOTREXATE [Concomitant]
     Dosage: 2.5 mg, UNK
  3. PREDNISONE [Concomitant]
     Dosage: 1 mg, UNK
  4. PRILOSEC                           /00661201/ [Concomitant]
     Dosage: 20 mg, UNK
  5. VITAMIN D /00107901/ [Concomitant]
     Dosage: 50000 UNK, UNK
  6. YAZ [Concomitant]
     Dosage: 3-0.02 MG
  7. ALIGN [Concomitant]
     Dosage: 4 mg, UNK

REACTIONS (4)
  - Arthropod bite [Unknown]
  - Rash erythematous [Unknown]
  - Localised infection [Recovered/Resolved]
  - Rubber sensitivity [Unknown]
